FAERS Safety Report 16318751 (Version 2)
Quarter: 2019Q2

REPORT INFORMATION
  Report Type: Report from Study
  Country: US (occurrence: US)
  Receive Date: 20190516
  Receipt Date: 20190531
  Transmission Date: 20190711
  Serious: Yes (Hospitalization)
  Sender: FDA-Public Use
  Company Number: US-TAIHO ONCOLOGY  INC-EU-2019-01572

PATIENT
  Age: 83 Year
  Sex: Male
  Weight: 65.38 kg

DRUGS (14)
  1. LONSURF [Suspect]
     Active Substance: TIPIRACIL HYDROCHLORIDE\TRIFLURIDINE
     Indication: OESOPHAGEAL CANCER METASTATIC
     Dosage: CYCLE 1
     Route: 048
     Dates: start: 20190401, end: 20190412
  2. MAGNESIUM [Concomitant]
     Active Substance: MAGNESIUM
     Dosage: NI
  3. SODIUM CHLOR [Concomitant]
     Active Substance: SODIUM CHLORIDE
     Dosage: NI
  4. ATORVASTATIN [Concomitant]
     Active Substance: ATORVASTATIN
     Dosage: NI
  5. SPIRONOLACT [Concomitant]
     Active Substance: SPIRONOLACTONE
     Dosage: NI
  6. LUTEIN [Concomitant]
     Active Substance: LUTEIN
     Dosage: NI
  7. LONSURF [Suspect]
     Active Substance: TIPIRACIL HYDROCHLORIDE\TRIFLURIDINE
     Indication: GASTRIC CANCER
     Dosage: CURRENT CYCLE 2 - 2 PINK AND 1 WHITE - Q 28 DAY CYCLE
     Route: 048
     Dates: start: 20190429
  8. METOPROLOL TARTRATE. [Concomitant]
     Active Substance: METOPROLOL TARTRATE
     Dosage: NI
  9. VITAMIN D3 [Concomitant]
     Active Substance: CHOLECALCIFEROL
     Dosage: NI
  10. ASPIRIN. [Concomitant]
     Active Substance: ASPIRIN
     Dosage: NI
  11. LOSARTAN POT [Concomitant]
     Active Substance: LOSARTAN POTASSIUM
     Dosage: NI
  12. OMEPRAZOLE. [Concomitant]
     Active Substance: OMEPRAZOLE
     Dosage: NI
  13. MEGESTROL AC [Concomitant]
     Dosage: NI
  14. VITAMIN B12 [Concomitant]
     Active Substance: CYANOCOBALAMIN
     Dosage: NI

REACTIONS (7)
  - Vital functions abnormal [Unknown]
  - White blood cell count decreased [Unknown]
  - Haemoglobin decreased [Unknown]
  - Off label use [Unknown]
  - Asthenia [Unknown]
  - Full blood count decreased [Unknown]
  - Platelet count decreased [Unknown]

NARRATIVE: CASE EVENT DATE: 201904
